FAERS Safety Report 18346897 (Version 1)
Quarter: 2020Q4

REPORT INFORMATION
  Report Type: Spontaneous
  Country: FR (occurrence: FR)
  Receive Date: 20201005
  Receipt Date: 20201005
  Transmission Date: 20210114
  Serious: Yes (Hospitalization)
  Sender: FDA-Public Use
  Company Number: FR-ANIPHARMA-2020-FR-000265

PATIENT
  Age: 69 Year
  Sex: Male

DRUGS (3)
  1. LEUPRORELIN [Suspect]
     Active Substance: LEUPROLIDE ACETATE
     Dosage: UNKNOWN DOSE EVERY CYCLE
     Route: 058
     Dates: start: 20200727, end: 20200727
  2. CABAZITAXEL [Suspect]
     Active Substance: CABAZITAXEL
     Dosage: 40 MG Q_CYCLE
     Route: 042
     Dates: start: 20200807, end: 20200807
  3. CASODEX [Suspect]
     Active Substance: BICALUTAMIDE
     Indication: PROSTATE CANCER
     Dosage: 50 MG Q_CYCLE / 50 MG Q_CYCLE
     Route: 048
     Dates: start: 20200713, end: 20200802

REACTIONS (1)
  - Acute kidney injury [Unknown]

NARRATIVE: CASE EVENT DATE: 20200818
